FAERS Safety Report 5586932-X (Version None)
Quarter: 2008Q1

REPORT INFORMATION
  Report Type: 
  Country: None (occurrence: None)
  Receive Date: 20080110
  Receipt Date: 20080107
  Transmission Date: 20080703
  Serious: Yes (Other)
  Sender: FDA-Public Use
  Company Number: GB-TEVA-166036ISR

PATIENT
  Age: 43 Year
  Sex: Female

DRUGS (4)
  1. VALPROIC ACID [Suspect]
     Indication: AFFECTIVE DISORDER
     Route: 048
     Dates: start: 20061229, end: 20070418
  2. CLOZAPINE [Suspect]
     Indication: SCHIZOPHRENIA
     Route: 048
     Dates: start: 20061223, end: 20070419
  3. CLOZAPINE [Suspect]
     Route: 048
     Dates: start: 20061128
  4. LITHIUM CARBONATE [Suspect]
     Indication: AFFECTIVE DISORDER
     Route: 048
     Dates: start: 20070201, end: 20070425

REACTIONS (8)
  - BALANCE DISORDER [None]
  - CEREBELLAR ATROPHY [None]
  - CONFUSIONAL STATE [None]
  - DRUG LEVEL ABOVE THERAPEUTIC [None]
  - DYSARTHRIA [None]
  - MENSTRUAL DISORDER [None]
  - SEDATION [None]
  - TOXIC ENCEPHALOPATHY [None]
